FAERS Safety Report 6794553-6 (Version None)
Quarter: 2010Q2

REPORT INFORMATION
  Report Type: 
  Country: None (occurrence: None)
  Receive Date: 20100625
  Receipt Date: 20100615
  Transmission Date: 20101027
  Serious: Yes (Death)
  Sender: FDA-Public Use
  Company Number: SE-PFIZER INC-2010072008

PATIENT
  Age: 54 Year
  Sex: Female

DRUGS (4)
  1. SPIRONOLACTONE [Suspect]
     Dosage: 25 MG, UNK
  2. RAMIPRIL [Suspect]
     Dosage: 1.25 MG, UNK
  3. POTASSIUM CHLORIDE [Suspect]
     Dosage: 750 MG, 2X/DAY
  4. DICLOFENAC [Suspect]
     Dosage: UNK
     Dates: start: 20100201

REACTIONS (2)
  - BLOOD POTASSIUM INCREASED [None]
  - ILL-DEFINED DISORDER [None]
